FAERS Safety Report 8561311 (Version 2)
Quarter: 2013Q2

REPORT INFORMATION
  Report Type: Spontaneous
  Country: US (occurrence: US)
  Receive Date: 20120514
  Receipt Date: 20130513
  Transmission Date: 20140414
  Serious: Yes (Hospitalization)
  Sender: FDA-Public Use
  Company Number: US-BAYER-2012-046294

PATIENT
  Age: 27 Year
  Sex: Female
  Weight: 55.33 kg

DRUGS (4)
  1. YAZ [Suspect]
  2. GIANVI [Suspect]
  3. CLINDAMYCIN [Concomitant]
     Dosage: UNK
     Dates: start: 20110405
  4. SULFACETAMIDE SODIUM W/SULFUR [Concomitant]
     Dosage: UNK
     Dates: start: 20110317

REACTIONS (1)
  - Deep vein thrombosis [None]
